FAERS Safety Report 5044087-4 (Version None)
Quarter: 2006Q2

REPORT INFORMATION
  Report Type: 
  Country: None (occurrence: None)
  Receive Date: 20060629
  Receipt Date: 20060619
  Transmission Date: 20061013
  Serious: Yes (Other)
  Sender: FDA-Public Use
  Company Number: B0428774A

PATIENT
  Age: 26 Year
  Sex: Male

DRUGS (1)
  1. THORAZINE [Suspect]
     Indication: PSYCHOTIC DISORDER
     Dosage: 200 MG/PER DAY;

REACTIONS (1)
  - PRIAPISM [None]
